FAERS Safety Report 8216733-5 (Version None)
Quarter: 2012Q1

REPORT INFORMATION
  Report Type: 
  Country: None (occurrence: None)
  Receive Date: 20120316
  Receipt Date: 20120315
  Transmission Date: 20120608
  Serious: Yes (Other)
  Sender: FDA-Public Use
  Company Number: NZ-ROCHE-1041815

PATIENT
  Sex: Male
  Weight: 80 kg

DRUGS (3)
  1. PEMETREXED [Concomitant]
     Indication: LUNG NEOPLASM MALIGNANT
     Route: 042
     Dates: start: 20110927, end: 20120111
  2. AVASTIN [Suspect]
     Indication: LUNG NEOPLASM MALIGNANT
     Route: 042
     Dates: start: 20110927, end: 20120111
  3. CARBOPLATIN [Concomitant]
     Indication: LUNG NEOPLASM MALIGNANT
     Route: 042
     Dates: start: 20110927, end: 20120111

REACTIONS (2)
  - PAIN IN EXTREMITY [None]
  - EXTREMITY NECROSIS [None]
